FAERS Safety Report 15739992 (Version 3)
Quarter: 2019Q1

REPORT INFORMATION
  Report Type: Spontaneous
  Country: US (occurrence: US)
  Receive Date: 20181219
  Receipt Date: 20190313
  Transmission Date: 20190417
  Serious: Yes (Other)
  Sender: FDA-Public Use
  Company Number: US-SA-2018SA343343

PATIENT
  Age: 73 Year
  Sex: Female
  Weight: 67.5 kg

DRUGS (7)
  1. NEOSAR [Concomitant]
     Active Substance: CYCLOPHOSPHAMIDE
  2. ZETIA [Concomitant]
     Active Substance: EZETIMIBE
  3. DOCETAXEL. [Suspect]
     Active Substance: DOCETAXEL
     Indication: BREAST CANCER FEMALE
     Dosage: 100MG/M2 X 1.64 M2
     Route: 042
     Dates: start: 20150615, end: 20150615
  4. DOCETAXEL. [Suspect]
     Active Substance: DOCETAXEL
     Dosage: 100MG/M2 X 1.64 M2
     Route: 042
     Dates: start: 201512, end: 201512
  5. ATORVASTATIN [Concomitant]
     Active Substance: ATORVASTATIN
     Dosage: UNK
     Dates: start: 1992
  6. ADRIAMYCIN [Concomitant]
     Active Substance: DOXORUBICIN HYDROCHLORIDE
  7. CYTOXAN [Concomitant]
     Active Substance: CYCLOPHOSPHAMIDE

REACTIONS (2)
  - Alopecia [Not Recovered/Not Resolved]
  - Psychological trauma [Unknown]

NARRATIVE: CASE EVENT DATE: 201506
